FAERS Safety Report 4503647-7 (Version None)
Quarter: 2004Q4

REPORT INFORMATION
  Report Type: 
  Country: None (occurrence: None)
  Receive Date: 20041115
  Receipt Date: 20041101
  Transmission Date: 20050328
  Serious: Yes (Hospitalization)
  Sender: FDA-Public Use
  Company Number: 2004-BP-10009AU

PATIENT
  Age: 82 Year
  Sex: Female

DRUGS (6)
  1. MOBIC [Suspect]
     Indication: ARTHRITIS
     Dosage: 7.5 MG (7.5 MG, 1 DAILY) PO
     Route: 048
     Dates: start: 20040520, end: 20040721
  2. AVAPRO HCT (KARVEA HCT) (TA) [Concomitant]
  3. MOGADON (NITRAZEPAM) (TA) [Concomitant]
  4. MAXOLON (METOCLOPRAMIDE HYDROCHLORIDE) (TA) [Concomitant]
  5. PULMICORT [Concomitant]
  6. VENTOLIN CFC-FREE (SALBUTAMOL) (NR) [Concomitant]

REACTIONS (7)
  - ANOREXIA [None]
  - METABOLIC ACIDOSIS [None]
  - NAUSEA [None]
  - OEDEMA [None]
  - RENAL DISORDER [None]
  - RENAL FAILURE ACUTE [None]
  - VOMITING [None]
